FAERS Safety Report 23683965 (Version 2)
Quarter: 2024Q2

REPORT INFORMATION
  Report Type: Report from Study
  Country: IT (occurrence: IT)
  Receive Date: 20240328
  Receipt Date: 20240415
  Transmission Date: 20240715
  Serious: Yes (Other)
  Sender: FDA-Public Use
  Company Number: IT-KYOWAKIRIN-2024KK006527

PATIENT

DRUGS (8)
  1. BUROSUMAB [Suspect]
     Active Substance: BUROSUMAB
     Indication: Hereditary hypophosphataemic rickets
     Dosage: 60 MG, 1X/MONTH
     Route: 065
     Dates: start: 20201204
  2. SERTRALINE HYDROCHLORIDE [Concomitant]
     Active Substance: SERTRALINE HYDROCHLORIDE
     Indication: Fibromyalgia
     Dosage: UNK
     Route: 065
  3. IBUPROFEN [Concomitant]
     Active Substance: IBUPROFEN
     Indication: Pain in extremity
     Dosage: PRN (AS NEEDED (PRN))
     Route: 048
     Dates: start: 202202, end: 20220620
  4. IBUPROFEN [Concomitant]
     Active Substance: IBUPROFEN
     Indication: Facial pain
     Dosage: 600 MG, TID
     Route: 048
     Dates: start: 20221125, end: 20221130
  5. BIOTINA [BIOTIN] [Concomitant]
     Indication: Alopecia
     Dosage: 5 MG, QD
     Route: 048
     Dates: start: 20221104, end: 20230203
  6. VITAMIN D NOS [Concomitant]
     Active Substance: VITAMIN D NOS
     Indication: Vitamin supplementation
     Dosage: QD (DAILY (OD))
     Route: 048
     Dates: start: 20201204
  7. DERMATAR [BETAMETHASONE VALEROACETATE;ICHTHAMMOL;SALICYLIC ACID] [Concomitant]
     Indication: Acne
     Dosage: QD (DAILY (OD))
     Route: 061
     Dates: start: 20211118
  8. GENTALYN BETA [Concomitant]
     Indication: Acne
     Dosage: PRN (AS NEEDED (PRN))
     Route: 061
     Dates: start: 20211118

REACTIONS (1)
  - Nephrolithiasis [Not Recovered/Not Resolved]

NARRATIVE: CASE EVENT DATE: 20240320
